FAERS Safety Report 5375452-3 (Version None)
Quarter: 2007Q2

REPORT INFORMATION
  Report Type: 
  Country: None (occurrence: None)
  Receive Date: 20070629
  Receipt Date: 20070619
  Transmission Date: 20071010
  Serious: Yes (Disabling, Other)
  Sender: FDA-Public Use
  Company Number: AU-PFIZER INC-2007037299

PATIENT
  Sex: Male
  Weight: 83 kg

DRUGS (3)
  1. ZOLOFT [Suspect]
     Indication: POST-TRAUMATIC STRESS DISORDER
     Route: 048
  2. ZOLOFT [Suspect]
     Indication: DEPRESSION
  3. SULFASALAZINE [Concomitant]

REACTIONS (5)
  - DEPRESSIVE SYMPTOM [None]
  - FREQUENT BOWEL MOVEMENTS [None]
  - GASTROINTESTINAL HAEMORRHAGE [None]
  - PAIN [None]
  - RECTAL HAEMORRHAGE [None]
